FAERS Safety Report 6473233-0 (Version None)
Quarter: 2009Q4

REPORT INFORMATION
  Report Type: 
  Country: None (occurrence: None)
  Receive Date: 20091204
  Receipt Date: 20090527
  Transmission Date: 20100525
  Serious: Yes (Life-Threatening, Hospitalization)
  Sender: FDA-Public Use
  Company Number: JP-ELI_LILLY_AND_COMPANY-JP200809005567

PATIENT
  Sex: Female
  Weight: 51 kg

DRUGS (4)
  1. GEMCITABINE HCL [Suspect]
     Indication: BILE DUCT CANCER STAGE IV
     Dosage: 800 MG/M2, OTHER
     Route: 042
     Dates: start: 20070124, end: 20070206
  2. GEMCITABINE HCL [Suspect]
     Dosage: 1000 MG/M2, OTHER
     Route: 042
     Dates: start: 20070227, end: 20070913
  3. DECADRON /00016002/ [Concomitant]
     Indication: PROPHYLAXIS
     Dosage: 8 MG, DAILY (1/D)
     Route: 042
     Dates: start: 20070124, end: 20070913
  4. KYTRIL /01178102/ [Concomitant]
     Indication: PROPHYLAXIS
     Dosage: 3 MG, DAILY (1/D)
     Route: 042
     Dates: start: 20070124, end: 20070913

REACTIONS (2)
  - HAEMOBILIA [None]
  - LIVER ABSCESS [None]
